FAERS Safety Report 5027149-7 (Version None)
Quarter: 2006Q2

REPORT INFORMATION
  Report Type: 
  Country: None (occurrence: None)
  Receive Date: 20060615
  Receipt Date: 20060606
  Transmission Date: 20061013
  Serious: Yes (Other)
  Sender: FDA-Public Use
  Company Number: AU-BRISTOL-MYERS SQUIBB COMPANY-13403340

PATIENT
  Sex: Male

DRUGS (3)
  1. ABILIFY [Suspect]
  2. CARBAMAZEPINE [Concomitant]
  3. LITHIUM CARBONATE [Concomitant]

REACTIONS (1)
  - ROAD TRAFFIC ACCIDENT [None]
